FAERS Safety Report 18638993 (Version 2)
Quarter: 2022Q2

REPORT INFORMATION
  Report Type: Spontaneous
  Country: US (occurrence: US)
  Receive Date: 20201218
  Receipt Date: 20220418
  Transmission Date: 20220721
  Serious: No
  Sender: FDA-Public Use
  Company Number: US-PFIZER INC-2020499047

PATIENT
  Age: 50 Year
  Sex: Female
  Weight: 56 kg

DRUGS (8)
  1. INLYTA [Suspect]
     Active Substance: AXITINIB
     Indication: Renal cell carcinoma
     Dosage: 5 MG
     Dates: start: 20200211
  2. INLYTA [Suspect]
     Active Substance: AXITINIB
     Dosage: 5 MG, TWICE A DAY
     Route: 048
     Dates: start: 20200915
  3. INLYTA [Suspect]
     Active Substance: AXITINIB
     Dosage: 5 MG, TWICE A DAY
     Route: 048
     Dates: start: 20200915
  4. INLYTA [Suspect]
     Active Substance: AXITINIB
     Dosage: 5 MG, CYCLIC (1 WEEK ON AND 1 WEEK OFF)
     Dates: start: 202105
  5. MAITAKE AKTIV [Concomitant]
     Dosage: UNK
  6. AGARICUS [AGARICUS SUBRUFESCENS] [Concomitant]
     Dosage: UNK
  7. OPC 3 [Concomitant]
     Dosage: UNK
  8. VITAMINS [Concomitant]
     Active Substance: VITAMINS
     Dosage: UNK

REACTIONS (16)
  - Peripheral swelling [Unknown]
  - Skin exfoliation [Unknown]
  - Skin papilloma [Unknown]
  - Pain [Unknown]
  - Oral discomfort [Unknown]
  - Feeding disorder [Unknown]
  - Diarrhoea [Unknown]
  - Amylase increased [Unknown]
  - Lipase increased [Unknown]
  - Oral pain [Unknown]
  - Pancreatic enzymes increased [Unknown]
  - Abdominal distension [Unknown]
  - Abdominal pain upper [Unknown]
  - Flatulence [Unknown]
  - Off label use [Unknown]
  - Product use issue [Unknown]

NARRATIVE: CASE EVENT DATE: 20200101
